FAERS Safety Report 4359498-X (Version None)
Quarter: 2004Q2

REPORT INFORMATION
  Report Type: 
  Country: None (occurrence: None)
  Receive Date: 20040511
  Receipt Date: 20040430
  Transmission Date: 20050107
  Serious: Yes (Death)
  Sender: FDA-Public Use
  Company Number: REL-RIR-122

PATIENT
  Age: 73 Year
  Sex: Male

DRUGS (8)
  1. RYTHMOL [Suspect]
     Dosage: 300 MG QD ORAL
     Route: 048
  2. VALPROMIDE [Suspect]
     Dosage: 600 MG QD ORAL
     Route: 048
     Dates: end: 20031215
  3. DOMPERIDONE [Suspect]
     Dosage: 30 MG QD ORAL
     Route: 048
  4. TRIHEXYPHENIDYL HCL [Suspect]
     Dosage: 5 MG QD ORAL
     Route: 048
     Dates: start: 20031215, end: 20040126
  5. TRIHEXYPHENIDYL HCL [Suspect]
     Dosage: 5 MG QD ORAL
     Route: 048
     Dates: end: 20031214
  6. LORAZEPAM [Suspect]
     Dosage: 2.5 MG QD ORAL
     Route: 048
     Dates: end: 20040202
  7. OLANZAPINE [Suspect]
     Indication: PSYCHOTIC DISORDER
     Dosage: 10 MG QD ORAL
     Route: 048
     Dates: start: 20031230, end: 20040202
  8. OLANZAPINE [Suspect]
     Indication: PSYCHOTIC DISORDER
     Dosage: 5 MG QD ORAL
     Route: 048
     Dates: start: 20031204, end: 20031229

REACTIONS (3)
  - AGITATION [None]
  - CATATONIA [None]
  - GENERAL PHYSICAL HEALTH DETERIORATION [None]
